FAERS Safety Report 13678013 (Version 2)
Quarter: 2018Q1

REPORT INFORMATION
  Report Type: Spontaneous
  Country: US (occurrence: US)
  Receive Date: 20170622
  Receipt Date: 20180228
  Transmission Date: 20180508
  Serious: Yes (Death, Life-Threatening, Hospitalization)
  Sender: FDA-Public Use
  Company Number: US-JNJFOC-20170619888

PATIENT
  Age: 50 Year
  Sex: Female

DRUGS (1)
  1. INVOKANA [Suspect]
     Active Substance: CANAGLIFLOZIN
     Indication: DIABETES MELLITUS
     Route: 048
     Dates: start: 201404, end: 201508

REACTIONS (6)
  - Pneumonia staphylococcal [Recovering/Resolving]
  - Acute kidney injury [Recovering/Resolving]
  - Cerebrovascular accident [Recovering/Resolving]
  - Diabetic ketoacidosis [Recovered/Resolved]
  - Bacterial sepsis [Recovering/Resolving]
  - Urinary retention [Recovering/Resolving]

NARRATIVE: CASE EVENT DATE: 20150507
